FAERS Safety Report 26056095 (Version 1)
Quarter: 2025Q4

REPORT INFORMATION
  Report Type: Spontaneous
  Country: EU (occurrence: EU)
  Receive Date: 20251118
  Receipt Date: 20251118
  Transmission Date: 20260118
  Serious: Yes (Hospitalization)
  Sender: ACCORD
  Company Number: None

PATIENT
  Age: 78 Year
  Sex: Female

DRUGS (5)
  1. DAPTOMYCIN [Suspect]
     Active Substance: DAPTOMYCIN
     Indication: Bacterial infection
     Dates: start: 20250404
  2. LEVOFLOXACIN [Suspect]
     Active Substance: LEVOFLOXACIN
     Indication: Bacterial infection
     Dates: start: 20250331, end: 20250403
  3. FUROSEMIDE [Suspect]
     Active Substance: FUROSEMIDE
     Indication: Cardiac failure
     Dates: start: 20250327, end: 20250403
  4. CEFTAROLINE [Suspect]
     Active Substance: CEFTAROLINE
     Indication: Bacterial infection
     Dates: start: 20250404
  5. CALCIPARINE [Suspect]
     Active Substance: HEPARIN CALCIUM
     Indication: Thrombosis prophylaxis
     Dosage: SUBCUTANEOUS, 5,000 IU/0.2 ML, SOLUTION FOR INJECTION
     Dates: start: 20250309, end: 20250404

REACTIONS (3)
  - Acute kidney injury [Recovering/Resolving]
  - Condition aggravated [Recovering/Resolving]
  - Haematoma [Recovering/Resolving]

NARRATIVE: CASE EVENT DATE: 20250327
